FAERS Safety Report 17407246 (Version 1)
Quarter: 2020Q1

REPORT INFORMATION
  Report Type: Spontaneous
  Country: US (occurrence: US)
  Receive Date: 20200128
  Receipt Date: 20200128
  Transmission Date: 20200409
  Serious: Yes (Hospitalization)
  Sender: FDA-Public Use
  Company Number: None

PATIENT
  Age: 56 Year
  Sex: Female

DRUGS (64)
  1. ALBUTEROL. [Concomitant]
     Active Substance: ALBUTEROL
  2. GRALISE [Concomitant]
     Active Substance: GABAPENTIN
  3. IBUPROFEN. [Concomitant]
     Active Substance: IBUPROFEN
  4. LANSOPRAZOLE. [Concomitant]
     Active Substance: LANSOPRAZOLE
  5. NITROGLYCERN [Concomitant]
  6. AZITHROMYCIN ANHYDROUS. [Concomitant]
     Active Substance: AZITHROMYCIN ANHYDROUS
  7. BUT/APAP/CAF [Concomitant]
  8. LORAZEPAM. [Concomitant]
     Active Substance: LORAZEPAM
  9. METFORMIN [Concomitant]
     Active Substance: METFORMIN HYDROCHLORIDE
  10. NITROGLYCER [Concomitant]
  11. NYSTATIN. [Concomitant]
     Active Substance: NYSTATIN
  12. POLYETH GLYC [Concomitant]
     Active Substance: POLYETHYLENE GLYCOLS
  13. SENEXON-S [Concomitant]
     Active Substance: DOCUSATE SODIUM\SENNOSIDES A AND B
  14. SENNA-S [Concomitant]
     Active Substance: DOCUSATE SODIUM\SENNOSIDES
  15. TOPIRAMATE. [Concomitant]
     Active Substance: TOPIRAMATE
  16. VENTOLIN HFA [Concomitant]
     Active Substance: ALBUTEROL SULFATE
  17. BOTOX [Suspect]
     Active Substance: ONABOTULINUMTOXINA
     Indication: MIGRAINE
     Dosage: ?          OTHER FREQUENCY:Q8WKS;?
     Route: 058
     Dates: start: 20190307
  18. AMITIZA [Concomitant]
     Active Substance: LUBIPROSTONE
  19. BRILINTA [Concomitant]
     Active Substance: TICAGRELOR
  20. EMGALITY [Concomitant]
     Active Substance: GALCANEZUMAB-GNLM
  21. MAXALT [Concomitant]
     Active Substance: RIZATRIPTAN BENZOATE
  22. PRAVASTATIN. [Concomitant]
     Active Substance: PRAVASTATIN
  23. PREDNISONE. [Concomitant]
     Active Substance: PREDNISONE
  24. ZOFRAN [Concomitant]
     Active Substance: ONDANSETRON HYDROCHLORIDE
  25. ACETAMIN [Concomitant]
     Active Substance: ACETAMINOPHEN
  26. BUTRANS [Concomitant]
     Active Substance: BUPRENORPHINE
  27. FLUCONAZOLE. [Concomitant]
     Active Substance: FLUCONAZOLE
  28. FLUTICASONE. [Concomitant]
     Active Substance: FLUTICASONE
  29. FUROSEMIDE. [Concomitant]
     Active Substance: FUROSEMIDE
  30. NITROFURANTIN [Concomitant]
     Active Substance: NITROFURANTOIN
  31. OXYCODONE AND ACETAMINOPHEN [Concomitant]
     Active Substance: ACETAMINOPHEN\OXYCODONE HYDROCHLORIDE
  32. VIMPAT [Concomitant]
     Active Substance: LACOSAMIDE
  33. AUG BETAMET [Concomitant]
  34. CYMBALTA [Concomitant]
     Active Substance: DULOXETINE HYDROCHLORIDE
  35. DOK PLUS [Concomitant]
     Active Substance: DOCUSATE SODIUM\SENNOSIDES
  36. DULOXETINE. [Concomitant]
     Active Substance: DULOXETINE
  37. FEXOFENADINE [Concomitant]
     Active Substance: FEXOFENADINE HYDROCHLORIDE
  38. PROAIR HFA [Concomitant]
     Active Substance: ALBUTEROL SULFATE
  39. BUPRENORPHIN DIS [Concomitant]
  40. FIORICET [Concomitant]
     Active Substance: ACETAMINOPHEN\BUTALBITAL\CAFFEINE
  41. LINZESS [Concomitant]
     Active Substance: LINACLOTIDE
  42. MAGNESIUM [Concomitant]
     Active Substance: MAGNESIUM
  43. METHYFOL/ME [Concomitant]
  44. METOCLOPRAM [Concomitant]
     Active Substance: METOCLOPRAMIDE
  45. MYRBETRIQ [Concomitant]
     Active Substance: MIRABEGRON
  46. ONDANSETRON [Concomitant]
     Active Substance: ONDANSETRON
  47. ONETOUCH TES VERIO [Concomitant]
  48. ONETOUCH DEL MIS PLUS [Concomitant]
  49. OSELTAMVIR [Concomitant]
     Active Substance: OSELTAMIVIR
  50. SMZ/TMP DS [Concomitant]
     Active Substance: SULFAMETHOXAZOLE\TRIMETHOPRIM
  51. SUCRALFATE. [Concomitant]
     Active Substance: SUCRALFATE
  52. TRAZODONE [Concomitant]
     Active Substance: TRAZODONE HYDROCHLORIDE
  53. ALVESCO [Concomitant]
     Active Substance: CICLESONIDE
  54. BENZONATATE. [Concomitant]
     Active Substance: BENZONATATE
  55. LEVOFLOXACIN. [Concomitant]
     Active Substance: LEVOFLOXACIN
  56. MONTELUKAST [Concomitant]
     Active Substance: MONTELUKAST SODIUM
  57. ONETOUCH KIT VERIO [Concomitant]
  58. RANITIDINE. [Concomitant]
     Active Substance: RANITIDINE
  59. SPIRONOLACT [Concomitant]
     Active Substance: SPIRONOLACTONE
  60. VITAMIN D3 [Concomitant]
     Active Substance: CHOLECALCIFEROL
  61. LEVOCETIRIZI [Concomitant]
  62. ONETOUCH DEL MIS LANC [Concomitant]
  63. POT CL MICRO [Concomitant]
  64. TIZANIDINE. [Concomitant]
     Active Substance: TIZANIDINE

REACTIONS (2)
  - Oesophageal disorder [None]
  - Colon cancer [None]

NARRATIVE: CASE EVENT DATE: 201908
